FAERS Safety Report 8414975-7 (Version None)
Quarter: 2012Q2

REPORT INFORMATION
  Report Type: 
  Country: None (occurrence: None)
  Receive Date: 20120530
  Receipt Date: 20120523
  Transmission Date: 20120825
  Serious: Yes (Life-Threatening, Hospitalization)
  Sender: FDA-Public Use
  Company Number: 2009-198388-NL

PATIENT
  Age: 29 Year
  Sex: Female
  Weight: 86.1834 kg

DRUGS (3)
  1. TYLENOL PM [Concomitant]
  2. CALCIUM [Concomitant]
  3. NUVARING [Suspect]
     Indication: CONTRACEPTION
     Dosage: QM;VAG
     Route: 067
     Dates: start: 20060101, end: 20080207

REACTIONS (15)
  - TACHYCARDIA [None]
  - HYPERCOAGULATION [None]
  - HEADACHE [None]
  - CONTUSION [None]
  - FIBULA FRACTURE [None]
  - ELECTROCARDIOGRAM ST-T SEGMENT ABNORMAL [None]
  - PAIN [None]
  - DEEP VEIN THROMBOSIS [None]
  - PULMONARY EMBOLISM [None]
  - INTERNATIONAL NORMALISED RATIO DECREASED [None]
  - SYNCOPE [None]
  - PULMONARY HYPERTENSION [None]
  - PROTHROMBIN TIME PROLONGED [None]
  - FALL [None]
  - ANKLE FRACTURE [None]
